FAERS Safety Report 23602590 (Version 4)
Quarter: 2024Q2

REPORT INFORMATION
  Report Type: Spontaneous
  Country: GB (occurrence: GB)
  Receive Date: 20240306
  Receipt Date: 20240603
  Transmission Date: 20240716
  Serious: Yes (Hospitalization)
  Sender: FDA-Public Use
  Company Number: GB-MYLANLABS-2024M1020041

PATIENT
  Sex: Female
  Weight: 69.2 kg

DRUGS (26)
  1. CLOZARIL [Suspect]
     Active Substance: CLOZAPINE
     Indication: Schizophrenia
     Dosage: UNK
     Route: 065
  2. CLOZARIL [Suspect]
     Active Substance: CLOZAPINE
     Dosage: UNK
     Route: 048
     Dates: start: 20240229
  3. CLOZARIL [Suspect]
     Active Substance: CLOZAPINE
     Dosage: 450 MILLIGRAM, QD (50 MG ONCE EVERY DAY AND 400 MG ONCE EVERY DAY)
     Route: 048
     Dates: start: 20240301
  4. LEVETIRACETAM [Concomitant]
     Active Substance: LEVETIRACETAM
     Indication: Epilepsy
     Dosage: 1 GRAM, BID (ONCE MORNING AND ONCE NIGHT)
     Route: 048
  5. LEVETIRACETAM [Concomitant]
     Active Substance: LEVETIRACETAM
     Dosage: 1 GRAM, QD (ONCE EVERY DAY DURING THE DAY)
     Route: 048
  6. CANDESARTAN [Concomitant]
     Active Substance: CANDESARTAN
     Indication: Hypertension
     Dosage: 16 MILLIGRAM, QD (ONCE EVERY DAY)
     Route: 048
  7. PIZOTYLINE [Concomitant]
     Active Substance: PIZOTYLINE
     Indication: Migraine
     Dosage: 1.5 MILLIGRAM, QD (ONCE EVERY DAY)
     Route: 048
  8. SOLIFENACIN [Concomitant]
     Active Substance: SOLIFENACIN
     Indication: Urinary tract disorder
     Dosage: 5 MILLIGRAM, QD (ONCE EVERY DAY)
     Route: 048
  9. LANSOPRAZOLE [Concomitant]
     Active Substance: LANSOPRAZOLE
     Indication: Gastrooesophageal reflux disease
     Dosage: 15 MILLIGRAM, QD (ONCE EVERY DAY)
     Route: 048
  10. CYCLIZINE [Concomitant]
     Active Substance: CYCLIZINE
     Indication: Nausea
     Dosage: 50 MILLIGRAM, TID (THREE TIMES A DAY)
     Route: 048
  11. CYCLIZINE [Concomitant]
     Active Substance: CYCLIZINE
     Dosage: 50 MILLIGRAM (PRN)
     Route: 048
  12. FLUOXETINE [Concomitant]
     Active Substance: FLUOXETINE HYDROCHLORIDE
     Indication: Depressed mood
     Dosage: 40 MILLIGRAM, QD (ONCE EVERY DAY)
     Route: 048
  13. CALCIUM CARBONATE\CHOLECALCIFEROL [Concomitant]
     Active Substance: CALCIUM CARBONATE\CHOLECALCIFEROL
     Indication: Supplementation therapy
     Dosage: 1 DOSAGE FORM, BID (TWICE A DAY)
     Route: 048
  14. SENNA [Concomitant]
     Active Substance: SENNA LEAF\SENNOSIDES\SENNOSIDES A AND B
     Dosage: QD (7.5 TO 15MG ONCE EVERY DAY)
     Route: 048
  15. LORAZEPAM [Concomitant]
     Active Substance: LORAZEPAM
     Dosage: 1 MILLIGRAM (PRN)
     Route: 048
  16. PROMETHAZINE HYDROCHLORIDE [Concomitant]
     Active Substance: PROMETHAZINE HYDROCHLORIDE
     Dosage: 25 MILLIGRAM (PRN)
     Route: 048
  17. ACETAMINOPHEN [Concomitant]
     Active Substance: ACETAMINOPHEN
     Dosage: 1 GRAM (PRN)
     Route: 048
  18. LEVETIRACETAM [Concomitant]
     Active Substance: LEVETIRACETAM
     Dosage: 750 MILLIGRAM, QD (ONCE EVERY DAY)
     Route: 048
  19. PROCYCLIDINE [Concomitant]
     Active Substance: PROCYCLIDINE
     Dosage: 5 MILLIGRAM, BID (TWICE A DAY)
     Route: 048
  20. POLYETHYLENE GLYCOL 3350\POTASSIUM CHLORIDE\SODIUM BICARBONATE\SODIUM [Concomitant]
     Active Substance: POLYETHYLENE GLYCOL 3350\POTASSIUM CHLORIDE\SODIUM BICARBONATE\SODIUM CHLORIDE
     Dosage: 1 TO 2 SACHET PRN
     Route: 048
  21. DIAZEPAM [Concomitant]
     Active Substance: DIAZEPAM
     Dosage: 2 MILLIGRAM, TID (THREE TIMES A DAY)
     Route: 048
  22. ZOPICLONE [Concomitant]
     Active Substance: ZOPICLONE
     Dosage: 7.5 MILLIGRAM (PRN)
     Route: 048
  23. MOVICOL [Concomitant]
     Active Substance: POLYETHYLENE GLYCOL 3350\POTASSIUM CHLORIDE\SODIUM BICARBONATE\SODIUM CHLORIDE
     Dosage: 2 DOSAGE FORM, QD (2 SACHETS ONCE EVERY DAY)
     Route: 048
  24. SCOPOLAMINE HYDROBROMIDE [Concomitant]
     Active Substance: SCOPOLAMINE HYDROBROMIDE
     Dosage: 300 MICROGRAM, QD (ONCE EVERY DAY)
     Route: 048
  25. FORTIJUICE [Concomitant]
     Indication: Nutritional supplementation
     Dosage: 200 MILLILITER (PRN)
     Route: 065
  26. FORTIJUICE [Concomitant]
     Dosage: 200 MILLILITER, QID
     Route: 065

REACTIONS (2)
  - Schizophrenia [Recovering/Resolving]
  - Treatment noncompliance [Recovering/Resolving]
